FAERS Safety Report 6130238-7 (Version None)
Quarter: 2009Q1

REPORT INFORMATION
  Report Type: 
  Country: None (occurrence: None)
  Receive Date: 20090324
  Receipt Date: 20090316
  Transmission Date: 20090719
  Serious: Yes (Life-Threatening)
  Sender: FDA-Public Use
  Company Number: JP-BRISTOL-MYERS SQUIBB COMPANY-14540413

PATIENT
  Age: 62 Year
  Sex: Female
  Weight: 41 kg

DRUGS (5)
  1. ABILIFY [Suspect]
     Indication: SCHIZOPHRENIA
     Dosage: 12MG/D: 28OCT08 - 19DEC08 (53DAYS) 24MG/D: 20DEC08 - 5JAN09(17DAYS) 30MG/D: 06JAN09 -(ONGOING)
     Route: 048
     Dates: start: 20081028
  2. FUROSEMIDE [Concomitant]
     Dosage: TABLET FORM ONGOING
     Dates: start: 20081007
  3. DAI-KENCHU-TO [Concomitant]
     Dosage: GRANULE FORM
     Dates: start: 20081007
  4. YEAST [Concomitant]
     Dosage: EBIOS YEAST DRIED POWDER
     Dates: start: 20081010
  5. SAWADOL L [Concomitant]
     Dosage: TABLET
     Dates: start: 20081015

REACTIONS (2)
  - BRAIN NATRIURETIC PEPTIDE INCREASED [None]
  - OEDEMA PERIPHERAL [None]
